FAERS Safety Report 11220243 (Version 3)
Quarter: 2017Q1

REPORT INFORMATION
  Report Type: Report from Study
  Country: US (occurrence: US)
  Receive Date: 20150625
  Receipt Date: 20170201
  Transmission Date: 20170428
  Serious: No
  Sender: FDA-Public Use
  Company Number: US-EXELIXIS-CABO-15005400

PATIENT
  Sex: Female

DRUGS (4)
  1. COMETRIQ [Suspect]
     Active Substance: CABOZANTINIB S-MALATE
     Dosage: 40 MG, QD
     Route: 048
     Dates: start: 20150812, end: 20150825
  2. COMETRIQ [Suspect]
     Active Substance: CABOZANTINIB S-MALATE
     Indication: THYROID CANCER
     Dosage: 140 MG, QD
     Route: 048
     Dates: start: 20150401, end: 201505
  3. COMETRIQ [Suspect]
     Active Substance: CABOZANTINIB S-MALATE
     Dosage: 80 MG, QD
     Route: 048
     Dates: start: 201505, end: 201508
  4. COMETRIQ [Suspect]
     Active Substance: CABOZANTINIB S-MALATE
     Dosage: 20 MG, QD
     Route: 048
     Dates: start: 201510, end: 201605

REACTIONS (16)
  - Swollen tongue [Unknown]
  - Erythema [Unknown]
  - Dry skin [Unknown]
  - Insomnia [Unknown]
  - Neuralgia [Unknown]
  - Oral mucosal erythema [Unknown]
  - Drug intolerance [Unknown]
  - Blister [Unknown]
  - Sinusitis [Unknown]
  - Burning sensation [Not Recovered/Not Resolved]
  - Asthenia [Unknown]
  - Eating disorder [Unknown]
  - Pain in extremity [Not Recovered/Not Resolved]
  - Gait disturbance [Not Recovered/Not Resolved]
  - Rash [Recovered/Resolved]
  - Paraesthesia [Unknown]
